FAERS Safety Report 4828986-1 (Version None)
Quarter: 2005Q4

REPORT INFORMATION
  Report Type: 
  Country: None (occurrence: None)
  Receive Date: 20051027
  Receipt Date: 20050106
  Transmission Date: 20060501
  Serious: Yes (Other)
  Sender: FDA-Public Use
  Company Number: HQWYE216617JUL04

PATIENT
  Age: 63 Year
  Sex: Female

DRUGS (2)
  1. PREMARIN [Suspect]
     Dosage: ORAL
     Route: 048
     Dates: start: 19940101, end: 20020401
  2. MEDROXYPROGESTERONE ACETATE [Suspect]
     Dosage: ORAL
     Route: 048
     Dates: start: 19940101, end: 20020401

REACTIONS (2)
  - ALOPECIA [None]
  - BREAST CANCER [None]
